FAERS Safety Report 21535106 (Version 1)
Quarter: 2022Q4

REPORT INFORMATION
  Report Type: Other
  Country: CN (occurrence: CN)
  Receive Date: 20221101
  Receipt Date: 20221101
  Transmission Date: 20230113
  Serious: Yes (Life-Threatening)
  Sender: FDA-Public Use
  Company Number: CN-GE HEALTHCARE-2022CSU007710

PATIENT
  Age: 51 Year
  Sex: Female
  Weight: 50 kg

DRUGS (4)
  1. OMNIPAQUE [Suspect]
     Active Substance: IOHEXOL
     Indication: Computerised tomogram abdomen
     Dosage: 90 ML, SINGLE
     Route: 041
     Dates: start: 20221012, end: 20221012
  2. OMNIPAQUE [Suspect]
     Active Substance: IOHEXOL
     Indication: Oedema peripheral
  3. SODIUM CHLORIDE [Concomitant]
     Active Substance: SODIUM CHLORIDE
     Indication: Computerised tomogram abdomen
     Dosage: 50 ML, SINGLE
     Dates: start: 20221012, end: 20221012
  4. SODIUM CHLORIDE [Concomitant]
     Active Substance: SODIUM CHLORIDE
     Indication: Oedema peripheral

REACTIONS (16)
  - Mouth breathing [Recovering/Resolving]
  - Dysphoria [Recovering/Resolving]
  - Orthopnoea [Recovering/Resolving]
  - Restlessness [Recovering/Resolving]
  - Palpitations [Recovering/Resolving]
  - Tachypnoea [Recovering/Resolving]
  - Loss of consciousness [Recovering/Resolving]
  - Blood pressure immeasurable [Recovering/Resolving]
  - Cyanosis [Recovering/Resolving]
  - Oxygen saturation decreased [Recovering/Resolving]
  - Laryngeal oedema [Recovering/Resolving]
  - Chest discomfort [Recovering/Resolving]
  - Pulse abnormal [Recovering/Resolving]
  - Dyspnoea [Recovering/Resolving]
  - Wheezing [Recovering/Resolving]
  - Nausea [Recovering/Resolving]

NARRATIVE: CASE EVENT DATE: 20221012
